FAERS Safety Report 13695694 (Version 1)
Quarter: 2017Q2

REPORT INFORMATION
  Report Type: Spontaneous
  Country: US (occurrence: US)
  Receive Date: 20170627
  Receipt Date: 20170627
  Transmission Date: 20170830
  Serious: Yes (Other)
  Sender: FDA-Public Use
  Company Number: US-BIOMARINAP-US-2016-114508

PATIENT
  Sex: Male

DRUGS (1)
  1. KUVAN [Suspect]
     Active Substance: SAPROPTERIN DIHYDROCHLORIDE
     Indication: PHENYLKETONURIA
     Dosage: 1600 MG, QD
     Route: 048

REACTIONS (13)
  - Constipation [Unknown]
  - Eye infection staphylococcal [Unknown]
  - Headache [Unknown]
  - Toe walking [Unknown]
  - Dystonia [Unknown]
  - Musculoskeletal stiffness [Unknown]
  - Blood catecholamines decreased [Unknown]
  - Tetrahydrobiopterin deficiency [Unknown]
  - Asthenia [Unknown]
  - 5-hydroxyindolacetic acid decreased [Unknown]
  - Metabolic encephalopathy [Unknown]
  - Sleep disorder [Unknown]
  - Autism spectrum disorder [Unknown]
